FAERS Safety Report 5593301-5 (Version None)
Quarter: 2008Q1

REPORT INFORMATION
  Report Type: 
  Country: None (occurrence: None)
  Receive Date: 20080116
  Receipt Date: 20080109
  Transmission Date: 20080703
  Serious: Yes (Other)
  Sender: FDA-Public Use
  Company Number: A0703655A

PATIENT
  Age: 13 Year
  Sex: Female

DRUGS (1)
  1. PAXIL [Suspect]
     Indication: ANXIETY
     Route: 065
     Dates: start: 20030101

REACTIONS (4)
  - DEPRESSION [None]
  - SCHOOL REFUSAL [None]
  - SUICIDAL IDEATION [None]
  - THINKING ABNORMAL [None]
